APPROVED DRUG PRODUCT: STAVUDINE
Active Ingredient: STAVUDINE
Strength: 15MG
Dosage Form/Route: CAPSULE;ORAL
Application: A077672 | Product #003
Applicant: AUROBINDO PHARMA LTD
Approved: Dec 29, 2008 | RLD: No | RS: No | Type: DISCN